FAERS Safety Report 20694442 (Version 1)
Quarter: 2022Q2

REPORT INFORMATION
  Report Type: Spontaneous
  Country: BR (occurrence: BR)
  Receive Date: 20220411
  Receipt Date: 20220411
  Transmission Date: 20220720
  Serious: Yes (Other)
  Sender: FDA-Public Use
  Company Number: BR-LUPIN PHARMACEUTICALS INC.-2022-05140

PATIENT

DRUGS (10)
  1. RIFAMPIN [Suspect]
     Active Substance: RIFAMPIN
     Indication: Tuberculosis
     Dosage: UNK (RHZ REGIMEN; SUCCESSFULLY COMPLETED AFTER SIX MONTHS)
     Route: 065
     Dates: start: 200601
  2. RIFAMPIN [Suspect]
     Active Substance: RIFAMPIN
     Dosage: UNK (RHZ REGIMEN WAS REINTRODUCED)
     Route: 065
     Dates: start: 200904
  3. PYRAZINAMIDE [Suspect]
     Active Substance: PYRAZINAMIDE
     Indication: Tuberculosis
     Dosage: UNK (RHZ REGIMEN; SUCCESSFULLY COMPLETED AFTER SIX MONTHS)
     Route: 065
     Dates: start: 200601
  4. PYRAZINAMIDE [Suspect]
     Active Substance: PYRAZINAMIDE
     Dosage: UNK (RHZ REGIMEN WAS REINTRODUCED)
     Route: 065
     Dates: start: 200904
  5. PYRAZINAMIDE [Suspect]
     Active Substance: PYRAZINAMIDE
     Dosage: UNK (NEW THERAPEUTIC REGIMEN WAS INTRODUCED)
     Route: 065
     Dates: start: 200911
  6. ETHAMBUTOL [Suspect]
     Active Substance: ETHAMBUTOL HYDROCHLORIDE
     Indication: Tuberculosis
     Dosage: UNK
     Route: 065
     Dates: start: 200911
  7. ETHIONAMIDE [Suspect]
     Active Substance: ETHIONAMIDE
     Indication: Tuberculosis
     Dosage: UNK
     Route: 065
     Dates: start: 200911
  8. ISONIAZID [Suspect]
     Active Substance: ISONIAZID
     Indication: Tuberculosis
     Dosage: UNK (RHZ REGIMEN; SUCCESSFULLY COMPLETED AFTER SIX MONTHS)
     Route: 065
     Dates: start: 200601
  9. ISONIAZID [Suspect]
     Active Substance: ISONIAZID
     Dosage: UNK (RHZ REGIMEN WAS REINTRODUCED)
     Route: 065
     Dates: start: 200904
  10. STREPTOMYCIN [Suspect]
     Active Substance: STREPTOMYCIN SULFATE
     Indication: Tuberculosis
     Dosage: UNK
     Route: 065
     Dates: start: 200911

REACTIONS (2)
  - Treatment failure [Unknown]
  - Drug ineffective [Unknown]

NARRATIVE: CASE EVENT DATE: 20090401
